FAERS Safety Report 6558118-3 (Version None)
Quarter: 2010Q1

REPORT INFORMATION
  Report Type: 
  Country: None (occurrence: None)
  Receive Date: 20100129
  Receipt Date: 20100125
  Transmission Date: 20100710
  Serious: Yes (Hospitalization)
  Sender: FDA-Public Use
  Company Number: A0841918A

PATIENT
  Age: 67 Year
  Sex: Male
  Weight: 88.6 kg

DRUGS (1)
  1. AVANDARYL [Suspect]
     Route: 048
     Dates: end: 20080101

REACTIONS (3)
  - CARDIAC FAILURE CONGESTIVE [None]
  - CORONARY ARTERY DISEASE [None]
  - MYOCARDIAL INFARCTION [None]
